FAERS Safety Report 10695476 (Version 1)
Quarter: 2015Q1

REPORT INFORMATION
  Report Type: Spontaneous
  Country: US (occurrence: None)
  Receive Date: 20150106
  Receipt Date: 20150106
  Transmission Date: 20150721
  Serious: Yes (Hospitalization, Other)
  Sender: FDA-Public Use
  Company Number: None

PATIENT
  Age: 45 Year
  Sex: Female

DRUGS (1)
  1. COPAXONE [Suspect]
     Active Substance: GLATIRAMER ACETATE
     Indication: MULTIPLE SCLEROSIS
     Dosage: 20MG DAILY SQ
     Dates: start: 20140814

REACTIONS (6)
  - Blood pressure increased [None]
  - Cerebrovascular accident [None]
  - Balance disorder [None]
  - Blood cholesterol increased [None]
  - Rectal haemorrhage [None]
  - Breast mass [None]

NARRATIVE: CASE EVENT DATE: 20141117
